FAERS Safety Report 8001665-8 (Version None)
Quarter: 2011Q4

REPORT INFORMATION
  Report Type: 
  Country: None (occurrence: None)
  Receive Date: 20111222
  Receipt Date: 20111220
  Transmission Date: 20120403
  Serious: Yes (Hospitalization)
  Sender: FDA-Public Use
  Company Number: FR-ROCHE-1017953

PATIENT
  Sex: Male

DRUGS (3)
  1. ROCEPHIN [Suspect]
     Indication: OROPHARYNGEAL PAIN
  2. ROCEPHIN [Suspect]
     Indication: PHARYNGEAL DISORDER
     Route: 030
     Dates: start: 20110905
  3. IBUPROFEN [Suspect]
     Indication: PYREXIA
     Route: 048
     Dates: start: 20110905

REACTIONS (1)
  - RENAL FAILURE ACUTE [None]
